FAERS Safety Report 7794195-X (Version None)
Quarter: 2011Q4

REPORT INFORMATION
  Report Type: 
  Country: None (occurrence: None)
  Receive Date: 20111004
  Receipt Date: 20110926
  Transmission Date: 20120403
  Serious: Yes (Other)
  Sender: FDA-Public Use
  Company Number: US-UCBSA-024064

PATIENT
  Sex: Female

DRUGS (5)
  1. PRENATAL VITAMINS [Concomitant]
  2. VIMPAT [Suspect]
     Indication: EPILEPSY
     Dosage: 200 TWICE DAILY
  3. TOPAMAX [Concomitant]
     Route: 048
  4. VIMPAT [Suspect]
     Dosage: 300 TWICE DAILY
  5. FOLIC ACID [Concomitant]
     Route: 048

REACTIONS (6)
  - PREGNANCY [None]
  - STRESS [None]
  - BREAST FEEDING [None]
  - CONVULSION [None]
  - CAESAREAN SECTION [None]
  - INSOMNIA [None]
